FAERS Safety Report 4432320-9 (Version None)
Quarter: 2004Q3

REPORT INFORMATION
  Report Type: 
  Country: None (occurrence: None)
  Receive Date: 20040820
  Receipt Date: 20040809
  Transmission Date: 20050211
  Serious: Yes (Hospitalization)
  Sender: FDA-Public Use
  Company Number: 233862K04USA

PATIENT
  Age: 60 Year
  Sex: Female
  Weight: 75.2971 kg

DRUGS (10)
  1. REBIF [Suspect]
     Indication: MULTIPLE SCLEROSIS
     Dosage: 44 MCG
     Dates: start: 20040129
  2. MAXZIDE [Suspect]
     Dosage: 75 MG
     Dates: end: 20040510
  3. DETROL [Concomitant]
  4. SYNTHROID [Concomitant]
  5. EFFEXOR [Concomitant]
  6. EVISTA [Concomitant]
  7. CARBATROL [Concomitant]
  8. AMANTADINE (AMANTADINE) [Concomitant]
  9. SPIRONOLACTONE [Concomitant]
  10. METOPROLOL TARTRATE [Concomitant]

REACTIONS (14)
  - COLD SWEAT [None]
  - DEHYDRATION [None]
  - DIFFICULTY IN WALKING [None]
  - DYSGRAPHIA [None]
  - DYSKINESIA [None]
  - HYPERHIDROSIS [None]
  - IMPAIRED DRIVING ABILITY [None]
  - INJECTION SITE ERYTHEMA [None]
  - MEDICATION ERROR [None]
  - MULTIPLE SCLEROSIS [None]
  - OEDEMA PERIPHERAL [None]
  - RENAL FAILURE ACUTE [None]
  - SPEECH DISORDER [None]
  - WEIGHT INCREASED [None]
